FAERS Safety Report 18473890 (Version 2)
Quarter: 2021Q2

REPORT INFORMATION
  Report Type: Spontaneous
  Country: US (occurrence: US)
  Receive Date: 20201106
  Receipt Date: 20210622
  Transmission Date: 20210717
  Serious: Yes (Other)
  Sender: FDA-Public Use
  Company Number: US-ASTRAZENECA-2020SF43811

PATIENT
  Age: 28666 Day
  Sex: Female

DRUGS (27)
  1. OMEPRAZOLE. [Suspect]
     Active Substance: OMEPRAZOLE
     Route: 048
  2. LEVOFLOXACIN. [Concomitant]
     Active Substance: LEVOFLOXACIN
  3. MUPIROCIN. [Concomitant]
     Active Substance: MUPIROCIN
  4. BENZONATATE. [Concomitant]
     Active Substance: BENZONATATE
  5. MELOXICAM. [Concomitant]
     Active Substance: MELOXICAM
  6. PROAIR HFA [Concomitant]
     Active Substance: ALBUTEROL SULFATE
  7. METHYLPREDNISOLONE. [Concomitant]
     Active Substance: METHYLPREDNISOLONE
  8. FLUOCINONIDE. [Concomitant]
     Active Substance: FLUOCINONIDE
  9. NEXIUM [Suspect]
     Active Substance: ESOMEPRAZOLE MAGNESIUM
     Route: 048
     Dates: start: 2013, end: 20190703
  10. ERYTHROMYCIN. [Concomitant]
     Active Substance: ERYTHROMYCIN
  11. DICLOXACILLIN SODIUM MONOHYDRATE/AMOXICILLIN TRIHYDRATE/SACCHAROMYCES BOULARDII [Concomitant]
  12. CEFDINIR. [Concomitant]
     Active Substance: CEFDINIR
  13. CITALOPRAM [Concomitant]
     Active Substance: CITALOPRAM HYDROBROMIDE
  14. ROBAFEN [Concomitant]
     Active Substance: DEXTROMETHORPHAN HYDROBROMIDE\GUAIFENESIN
  15. ONDANSETRON [Concomitant]
     Active Substance: ONDANSETRON
  16. AMOXICILLIN. [Concomitant]
     Active Substance: AMOXICILLIN
  17. RESTASIS [Concomitant]
     Active Substance: CYCLOSPORINE
  18. VIRTUSSIN [Concomitant]
  19. TRAMADOL. [Concomitant]
     Active Substance: TRAMADOL
  20. RANITIDINE. [Concomitant]
     Active Substance: RANITIDINE
  21. PANTOPRAZOLE [Suspect]
     Active Substance: PANTOPRAZOLE
     Route: 065
  22. OXYCODONE?ACETAAMINOPHEN [Concomitant]
  23. LEVOTHYROXINE SODIUM. [Concomitant]
     Active Substance: LEVOTHYROXINE SODIUM
  24. PREDNISONE. [Concomitant]
     Active Substance: PREDNISONE
  25. METRONIDAZOLE. [Concomitant]
     Active Substance: METRONIDAZOLE
  26. AZITHROMYCIN ANHYDROUS. [Concomitant]
     Active Substance: AZITHROMYCIN ANHYDROUS
  27. ADVAIR HFA [Concomitant]
     Active Substance: FLUTICASONE PROPIONATE\SALMETEROL XINAFOATE

REACTIONS (3)
  - Adenocarcinoma gastric [Unknown]
  - Rebound acid hypersecretion [Unknown]
  - Chronic kidney disease [Unknown]

NARRATIVE: CASE EVENT DATE: 20181018
